FAERS Safety Report 10486380 (Version 4)
Quarter: 2014Q4

REPORT INFORMATION
  Report Type: Spontaneous
  Country: US (occurrence: US)
  Receive Date: 20141001
  Receipt Date: 20141201
  Transmission Date: 20150528
  Serious: Yes (Hospitalization, Disabling, Other)
  Sender: FDA-Public Use
  Company Number: US-JNJFOC-20140925504

PATIENT
  Age: 40 Year
  Sex: Female
  Weight: 65.77 kg

DRUGS (1)
  1. LEVAQUIN [Suspect]
     Active Substance: LEVOFLOXACIN
     Indication: PNEUMONITIS
     Route: 048
     Dates: start: 20101213

REACTIONS (13)
  - Weight increased [Recovered/Resolved]
  - Chronic obstructive pulmonary disease [Unknown]
  - Paralysis [Unknown]
  - Pleural effusion [Unknown]
  - Abasia [Recovered/Resolved]
  - Trigeminal neuralgia [Recovered/Resolved]
  - Neuropathy peripheral [Recovered/Resolved]
  - Back pain [Recovered/Resolved]
  - Respiratory failure [Recovered/Resolved]
  - Lung infection [Recovered/Resolved]
  - Septic shock [Recovered/Resolved]
  - Nerve injury [Unknown]
  - Acute respiratory distress syndrome [Recovered/Resolved]

NARRATIVE: CASE EVENT DATE: 20101213
